FAERS Safety Report 14384955 (Version 3)
Quarter: 2018Q4

REPORT INFORMATION
  Report Type: Report from Study
  Country: CA (occurrence: CA)
  Receive Date: 20180115
  Receipt Date: 20181227
  Transmission Date: 20190204
  Serious: Yes (Other)
  Sender: FDA-Public Use
  Company Number: CA-BIOVERATIV-2017BV000444

PATIENT
  Age: 66 Year
  Sex: Male

DRUGS (2)
  1. RECOMBINANT FACTOR IX FC FUSION/EFTRENONACOG ALFA [Suspect]
     Active Substance: EFTRENONACOG ALFA
     Indication: PROPHYLAXIS
  2. RECOMBINANT FACTOR IX FC FUSION/EFTRENONACOG ALFA [Suspect]
     Active Substance: EFTRENONACOG ALFA
     Indication: FACTOR IX DEFICIENCY
     Dosage: (RECEIVED 2 VIALS 3228 UNITS)
     Route: 042
     Dates: start: 20170712, end: 20180720

REACTIONS (5)
  - Contusion [Not Recovered/Not Resolved]
  - Arthralgia [Not Recovered/Not Resolved]
  - Haemarthrosis [Recovered/Resolved]
  - Joint swelling [Not Recovered/Not Resolved]
  - Condition aggravated [Not Recovered/Not Resolved]

NARRATIVE: CASE EVENT DATE: 20171108
